FAERS Safety Report 22916609 (Version 8)
Quarter: 2023Q4

REPORT INFORMATION
  Report Type: Spontaneous
  Country: US (occurrence: US)
  Receive Date: 20230907
  Receipt Date: 20231211
  Transmission Date: 20240109
  Serious: Yes (Hospitalization)
  Sender: FDA-Public Use
  Company Number: US-PFIZER INC-202101870992

PATIENT
  Age: 80 Year
  Sex: Female

DRUGS (2)
  1. BOSULIF [Suspect]
     Active Substance: BOSUTINIB MONOHYDRATE
     Indication: Chronic myeloid leukaemia
     Dosage: 400 MG, 1X/DAY
     Route: 048
     Dates: start: 20190731, end: 20211020
  2. BOSULIF [Suspect]
     Active Substance: BOSUTINIB MONOHYDRATE
     Dosage: 400 MG, 1X/DAY
     Route: 048
     Dates: start: 20220726

REACTIONS (6)
  - Lower limb fracture [Unknown]
  - Mental status changes [Unknown]
  - Alopecia [Unknown]
  - Diarrhoea [Unknown]
  - Arthralgia [Unknown]
  - Fall [Unknown]

NARRATIVE: CASE EVENT DATE: 20200522
